FAERS Safety Report 10340569 (Version 1)
Quarter: 2014Q3

REPORT INFORMATION
  Report Type: Spontaneous
  Country: JP (occurrence: JP)
  Receive Date: 20140724
  Receipt Date: 20140724
  Transmission Date: 20150326
  Serious: Yes (Other)
  Sender: FDA-Public Use
  Company Number: JP-VIIV HEALTHCARE LIMITED-B1004251A

PATIENT
  Sex: Female
  Weight: 49 kg

DRUGS (25)
  1. PROCHLORPERAZINE. [Concomitant]
     Active Substance: PROCHLORPERAZINE
     Indication: CAESAREAN SECTION
     Route: 030
     Dates: start: 20140609, end: 20140609
  2. ATONIN O [Concomitant]
     Active Substance: OXYTOCIN
     Indication: CAESAREAN SECTION
     Dates: start: 20140609, end: 20140609
  3. MARCAIN [Concomitant]
     Active Substance: BUPIVACAINE HYDROCHLORIDE
     Indication: CAESAREAN SECTION
     Dates: start: 20140609, end: 20140609
  4. CEFAZOLIN SODIUM. [Concomitant]
     Active Substance: CEFAZOLIN SODIUM
     Indication: CAESAREAN SECTION
     Route: 042
     Dates: start: 20140609, end: 20140610
  5. CALONAL [Concomitant]
     Active Substance: ACETAMINOPHEN
     Route: 048
     Dates: start: 20140214
  6. CRAVIT [Concomitant]
     Active Substance: LEVOFLOXACIN
     Route: 048
     Dates: start: 20140428, end: 20140430
  7. ANAPEINE [Concomitant]
     Active Substance: ROPIVACAINE HYDROCHLORIDE
     Indication: CAESAREAN SECTION
     Route: 008
     Dates: start: 20140609, end: 20140609
  8. KALETRA [Concomitant]
     Active Substance: LOPINAVIR\RITONAVIR
     Indication: HIV INFECTION
     Dosage: 2IUAX TWICE PER DAY
     Route: 048
     Dates: start: 20131129
  9. EDURANT [Concomitant]
     Active Substance: RILPIVIRINE HYDROCHLORIDE
     Route: 048
     Dates: start: 20121221, end: 20131027
  10. LUTEONIN [Concomitant]
     Route: 048
     Dates: start: 20140524
  11. MORPHINE HYDROCHLORIDE [Concomitant]
     Active Substance: MORPHINE HYDROCHLORIDE
     Indication: CAESAREAN SECTION
     Dates: start: 20140609, end: 20140609
  12. PHYSIO 140 [Concomitant]
     Indication: CAESAREAN SECTION
     Route: 042
     Dates: start: 20140609, end: 20140609
  13. PRIMPERAN [Concomitant]
     Active Substance: METOCLOPRAMIDE HYDROCHLORIDE
     Route: 048
     Dates: start: 20131213, end: 20131227
  14. CEFDINIR. [Concomitant]
     Active Substance: CEFDINIR
     Route: 048
     Dates: start: 20140214, end: 20140217
  15. LAC-B [Concomitant]
     Active Substance: BIFIDOBACTERIUM SPP.
     Route: 048
     Dates: start: 20140430, end: 20140506
  16. PL [Concomitant]
     Active Substance: ACETAMINOPHEN\CAFFEINE\PROMETHAZINE\SALICYLAMIDE
     Route: 048
     Dates: start: 20140303, end: 20140310
  17. EPHEDRIN [Concomitant]
     Active Substance: EPHEDRINE HYDROCHLORIDE
     Indication: CAESAREAN SECTION
     Dates: start: 20140609, end: 20140609
  18. ISENTRESS [Concomitant]
     Active Substance: RALTEGRAVIR POTASSIUM
     Route: 048
     Dates: start: 20131028, end: 20131128
  19. EPZICOM [Suspect]
     Active Substance: ABACAVIR SULFATE\LAMIVUDINE
     Indication: HIV INFECTION
     Dosage: 1IUAX PER DAY
     Route: 048
     Dates: start: 20100827
  20. CALONAL [Concomitant]
     Active Substance: ACETAMINOPHEN
     Route: 048
     Dates: start: 20140428, end: 20140506
  21. BICARBONATE [Concomitant]
     Active Substance: BICARBONATE ION
     Indication: CAESAREAN SECTION
     Route: 042
     Dates: start: 20140609, end: 20140609
  22. ZIDOVUDINE. [Concomitant]
     Active Substance: ZIDOVUDINE
     Indication: CAESAREAN SECTION
     Dates: start: 20140609, end: 20140609
  23. TIQUIZIUM BROMIDE [Concomitant]
     Active Substance: TIQUIZIUM BROMIDE
     Route: 048
     Dates: start: 20140430, end: 20140506
  24. XYLOCAINE [Concomitant]
     Active Substance: LIDOCAINE HYDROCHLORIDE
     Indication: CAESAREAN SECTION
     Dates: start: 20140609, end: 20140609
  25. HEPARIN CALCIUM [Concomitant]
     Active Substance: HEPARIN CALCIUM
     Indication: CAESAREAN SECTION
     Route: 058
     Dates: start: 20140609, end: 20140610

REACTIONS (2)
  - Caesarean section [Unknown]
  - Exposure during pregnancy [Unknown]
